FAERS Safety Report 9278383 (Version 4)
Quarter: 2013Q3

REPORT INFORMATION
  Report Type: Spontaneous
  Country: GB (occurrence: GB)
  Receive Date: 20130508
  Receipt Date: 20130726
  Transmission Date: 20140515
  Serious: Yes (Other)
  Sender: FDA-Public Use
  Company Number: GB-009507513-1305GBR001325

PATIENT
  Age: 19 Year
  Sex: Female

DRUGS (2)
  1. IMPLANON [Suspect]
     Dosage: UNK
     Route: 059
     Dates: start: 20100927, end: 20130503
  2. VENTOLIN INHALER [Concomitant]
     Dosage: UNK
     Route: 055

REACTIONS (4)
  - Abortion induced [Recovered/Resolved]
  - Unintended pregnancy [Recovered/Resolved]
  - Drug ineffective [Unknown]
  - Treatment failure [Unknown]
